FAERS Safety Report 24957375 (Version 1)
Quarter: 2025Q1

REPORT INFORMATION
  Report Type: Spontaneous
  Country: US (occurrence: US)
  Receive Date: 20250211
  Receipt Date: 20250211
  Transmission Date: 20250409
  Serious: No
  Sender: CASPER PHARMA
  Company Number: US-CASPERPHARMA-US-2025RISSPO00049

PATIENT
  Sex: Female

DRUGS (1)
  1. HYDROCORTISONE\NEOMYCIN\POLYMYXIN B [Suspect]
     Active Substance: HYDROCORTISONE\NEOMYCIN\POLYMYXIN B
     Indication: Product used for unknown indication
     Route: 065

REACTIONS (1)
  - Ear discomfort [Unknown]
